FAERS Safety Report 19866680 (Version 1)
Quarter: 2021Q3

REPORT INFORMATION
  Report Type: Spontaneous
  Country: US (occurrence: US)
  Receive Date: 20210921
  Receipt Date: 20210921
  Transmission Date: 20211014
  Serious: No
  Sender: FDA-Public Use
  Company Number: US-BRAINTREE LABORATORIES, INC.-2020BTE04298

PATIENT
  Age: 70 Year
  Sex: Female

DRUGS (1)
  1. SUPREP BOWEL PREP [Suspect]
     Active Substance: MAGNESIUM SULFATE\POTASSIUM SULFATE\SODIUM SULFATE
     Indication: COLONOSCOPY
     Dosage: 2 X 6 OZ. BOTTLE
     Route: 048
     Dates: start: 20200928, end: 20200929

REACTIONS (12)
  - Vomiting [None]
  - Blood pressure increased [None]
  - Anal incontinence [None]
  - Tremor [None]
  - Nausea [None]
  - Dizziness [None]
  - Dysgeusia [None]
  - Retching [None]
  - Bowel movement irregularity [None]
  - Bladder discomfort [None]
  - Urine output decreased [None]
  - Micturition urgency [None]

NARRATIVE: CASE EVENT DATE: 20200928
